FAERS Safety Report 13142255 (Version 4)
Quarter: 2017Q2

REPORT INFORMATION
  Report Type: Spontaneous
  Country: US (occurrence: US)
  Receive Date: 20170123
  Receipt Date: 20170413
  Transmission Date: 20170830
  Serious: Yes (Hospitalization)
  Sender: FDA-Public Use
  Company Number: US-ACTELION-A-US2017-148691

PATIENT
  Age: 70 Year
  Sex: Female
  Weight: 61.22 kg

DRUGS (4)
  1. COUMADIN [Concomitant]
     Active Substance: WARFARIN SODIUM
  2. UPTRAVI [Suspect]
     Active Substance: SELEXIPAG
     Indication: PULMONARY HYPERTENSION
     Dosage: 400 MCG, BID
     Route: 048
  3. UPTRAVI [Suspect]
     Active Substance: SELEXIPAG
     Dosage: UNK
     Route: 048
     Dates: start: 20160310
  4. ADCIRCA [Concomitant]
     Active Substance: TADALAFIL

REACTIONS (7)
  - Atrial fibrillation [Unknown]
  - Fluid overload [Unknown]
  - Malaise [Unknown]
  - Peripheral swelling [Unknown]
  - Dyspnoea [Unknown]
  - Gait disturbance [Unknown]
  - Asthenia [Unknown]
